FAERS Safety Report 7571181-6 (Version None)
Quarter: 2011Q2

REPORT INFORMATION
  Report Type: 
  Country: None (occurrence: None)
  Receive Date: 20110620
  Receipt Date: 20110603
  Transmission Date: 20111010
  Serious: Yes (Hospitalization, Other)
  Sender: FDA-Public Use
  Company Number: 2011MA006741

PATIENT
  Age: 41 Year
  Sex: Male

DRUGS (4)
  1. RIFAMPIN [Suspect]
     Indication: TUBERCULOSIS
  2. ETHAMBUTOL HYDROCHLORIDE [Concomitant]
  3. ISONIAZID [Concomitant]
  4. PYRAZINAMIDE [Concomitant]

REACTIONS (7)
  - HYPONATRAEMIA [None]
  - GENERAL PHYSICAL HEALTH DETERIORATION [None]
  - ELECTROLYTE IMBALANCE [None]
  - ORAL CANDIDIASIS [None]
  - SKIN EXFOLIATION [None]
  - DEHYDRATION [None]
  - ANAEMIA [None]
